FAERS Safety Report 6827439-9 (Version None)
Quarter: 2010Q3

REPORT INFORMATION
  Report Type: 
  Country: None (occurrence: None)
  Receive Date: 20100709
  Receipt Date: 20070116
  Transmission Date: 20110219
  Serious: No
  Sender: FDA-Public Use
  Company Number: US-PFIZER INC-2007005228

PATIENT
  Sex: Female
  Weight: 69.4 kg

DRUGS (10)
  1. CHANTIX [Suspect]
     Indication: SMOKING CESSATION THERAPY
     Dates: start: 20070114
  2. SEROQUEL [Concomitant]
  3. LEXAPRO [Concomitant]
  4. XANAX [Concomitant]
  5. ACETYLSALICYLIC ACID [Concomitant]
  6. CLARITIN [Concomitant]
  7. LIPITOR [Concomitant]
  8. COMBIVENT [Concomitant]
  9. FLOVENT [Concomitant]
  10. IBANDRONATE SODIUM [Concomitant]

REACTIONS (2)
  - INITIAL INSOMNIA [None]
  - SKIN BURNING SENSATION [None]
